FAERS Safety Report 8420241 (Version 3)
Quarter: 2013Q1

REPORT INFORMATION
  Report Type: Report from Study
  Country: DE (occurrence: DE)
  Receive Date: 20120222
  Receipt Date: 20130218
  Transmission Date: 20140127
  Serious: Yes (Hospitalization)
  Sender: FDA-Public Use
  Company Number: DE-MILLENNIUM PHARMACEUTICALS, INC.-2011-02429

PATIENT
  Age: 71 Year
  Sex: Male
  Weight: 80 kg

DRUGS (5)
  1. VELCADE [Suspect]
     Indication: PLASMA CELL MYELOMA
     Dosage: 1.3 MG/M2, CYCLIC
     Route: 042
     Dates: start: 20110517, end: 20110528
  2. ADRIAMYCIN                         /00330901/ [Concomitant]
     Indication: PLASMA CELL MYELOMA
     Dosage: 9 MG/M2, UNK
     Route: 042
     Dates: start: 20110517, end: 20110520
  3. DEXAMETHASONE [Concomitant]
     Indication: PLASMA CELL MYELOMA
     Dosage: 20 MG, UNK
     Dates: start: 20110517, end: 20110604
  4. CO-TRIMAZOLE [Concomitant]
     Indication: PROPHYLAXIS
     Dosage: 960 MG, BID
     Dates: start: 20110517, end: 201106
  5. ACICLOVIR [Concomitant]
     Indication: PROPHYLAXIS
     Dosage: 400 MG, BID
     Dates: start: 20110517, end: 201106

REACTIONS (2)
  - Pseudomembranous colitis [Recovered/Resolved]
  - Vascular stenosis [Recovered/Resolved]
